FAERS Safety Report 8495467-6 (Version None)
Quarter: 2012Q2

REPORT INFORMATION
  Report Type: 
  Country: None (occurrence: None)
  Receive Date: 20120403
  Receipt Date: 20111227
  Transmission Date: 20120825
  Serious: Yes (Other)
  Sender: FDA-Public Use
  Company Number: 3-1211-132

PATIENT
  Sex: Male

DRUGS (6)
  1. ROSUVASTATIN [Concomitant]
  2. AMLODIPINE [Concomitant]
  3. HYDROCORTISONE [Concomitant]
  4. DERMOTIC [Suspect]
     Indication: TINNITUS
     Dosage: TOPICAL
     Route: 061
  5. DERMOTIC [Suspect]
     Indication: FORMICATION
     Dosage: TOPICAL
     Route: 061
  6. ASPIRIN [Concomitant]

REACTIONS (2)
  - TINNITUS [None]
  - FORMICATION [None]
